FAERS Safety Report 23848153 (Version 1)
Quarter: 2024Q2

REPORT INFORMATION
  Report Type: Spontaneous
  Country: US (occurrence: US)
  Receive Date: 20240513
  Receipt Date: 20240513
  Transmission Date: 20240717
  Serious: Yes (Other)
  Sender: FDA-Public Use
  Company Number: US-BRISTOL-MYERS SQUIBB COMPANY-2024-071605

PATIENT
  Age: 72 Year
  Sex: Male
  Weight: 70.31 kg

DRUGS (8)
  1. OPDIVO [Suspect]
     Active Substance: NIVOLUMAB
     Indication: Lung neoplasm malignant
     Dosage: (2) 40MG VIALS OF OPDIVO (FIRST INFUSION)
     Route: 042
     Dates: start: 20240320
  2. OPDIVO [Suspect]
     Active Substance: NIVOLUMAB
     Dosage: (2) 40MG VIALS OF OPDIVO (SECOND INFUSION)
     Route: 041
     Dates: start: 20240410, end: 20240501
  3. HYDROCODONE [Concomitant]
     Active Substance: HYDROCODONE
     Dosage: DOSE- 5/325MG
  4. VITAMINS NOS [Concomitant]
     Active Substance: VITAMINS
  5. OMEPRAZOLE [Concomitant]
     Active Substance: DONEPEZIL HYDROCHLORIDE\OMEPRAZOLE\OMEPRAZOLE MAGNESIUM
  6. ONDANSETRON [Concomitant]
     Active Substance: ONDANSETRON
  7. STOOL SOFTENER (DOCUSATE) [Concomitant]
     Active Substance: DOCUSATE
  8. COMPAZINE [Concomitant]
     Active Substance: PROCHLORPERAZINE MALEATE
     Indication: Nausea

REACTIONS (3)
  - Liver function test increased [Unknown]
  - Aspartate aminotransferase increased [Unknown]
  - Off label use [Unknown]

NARRATIVE: CASE EVENT DATE: 20240501
